FAERS Safety Report 19922415 (Version 1)
Quarter: 2021Q4

REPORT INFORMATION
  Report Type: Spontaneous
  Country: US (occurrence: US)
  Receive Date: 20211005
  Receipt Date: 20211005
  Transmission Date: 20220303
  Serious: No
  Sender: FDA-Public Use
  Company Number: None

PATIENT
  Age: 54 Year
  Sex: Female

DRUGS (1)
  1. REGEN-COV [Suspect]
     Active Substance: CASIRIVIMAB\IMDEVIMAB
     Indication: COVID-19
     Dosage: ?          OTHER FREQUENCY:ONCE;
     Route: 041
     Dates: start: 20210927

REACTIONS (7)
  - Infusion related reaction [None]
  - Pruritus [None]
  - Dizziness [None]
  - Feeling abnormal [None]
  - Vision blurred [None]
  - Vomiting projectile [None]
  - Urticaria [None]

NARRATIVE: CASE EVENT DATE: 20210927
